FAERS Safety Report 10583328 (Version 1)
Quarter: 2014Q4

REPORT INFORMATION
  Report Type: Spontaneous
  Country: DE (occurrence: DE)
  Receive Date: 20141114
  Receipt Date: 20141114
  Transmission Date: 20150529
  Serious: Yes (Other)
  Sender: FDA-Public Use
  Company Number: DE-THROMBOGENICS NV-SPO-2014-1401

PATIENT
  Age: 66 Year
  Sex: Male

DRUGS (1)
  1. JETREA [Suspect]
     Active Substance: OCRIPLASMIN
     Dosage: 0.125 MG, ONE TIME DOSE
     Route: 031
     Dates: start: 20141105, end: 20141105

REACTIONS (4)
  - Corneal disorder [Unknown]
  - Corneal opacity [Unknown]
  - Corneal oedema [Unknown]
  - Visual acuity reduced [Unknown]

NARRATIVE: CASE EVENT DATE: 20141106
